FAERS Safety Report 8090595-1 (Version None)
Quarter: 2012Q1

REPORT INFORMATION
  Report Type: 
  Country: None (occurrence: None)
  Receive Date: 20120129
  Receipt Date: 20111113
  Transmission Date: 20120608
  Serious: No
  Sender: FDA-Public Use
  Company Number: US-ABBOTT-11P-163-0873906-00

PATIENT
  Sex: Male
  Weight: 90.8 kg

DRUGS (1)
  1. HUMIRA [Suspect]
     Indication: RHEUMATOID ARTHRITIS
     Dates: start: 20090101, end: 20110901

REACTIONS (5)
  - BLISTER [None]
  - SKIN DISCOLOURATION [None]
  - OSTEOMYELITIS [None]
  - SKIN ATROPHY [None]
  - SKIN HAEMORRHAGE [None]
